FAERS Safety Report 5843026-3 (Version None)
Quarter: 2008Q3

REPORT INFORMATION
  Report Type: 
  Country: None (occurrence: None)
  Receive Date: 20080811
  Receipt Date: 20080729
  Transmission Date: 20090109
  Serious: Yes (Death, Other)
  Sender: FDA-Public Use
  Company Number: 2007-03109

PATIENT
  Age: 64 Year
  Sex: Female
  Weight: 64 kg

DRUGS (11)
  1. VELCADE [Suspect]
     Indication: MULTIPLE MYELOMA
     Dosage: 2.1 MG UNK INTRAVENOUS
     Route: 042
     Dates: start: 20070115, end: 20070409
  2. PENTAMIDINE (PENTAMIDINE) [Suspect]
     Indication: MULTIPLE MYELOMA
     Dosage: 200 MG UNK INTRAVENOUS
     Route: 042
     Dates: start: 20070324, end: 20070328
  3. FRAGMIN [Suspect]
     Indication: MULTIPLE MYELOMA
     Dosage: 2000 IU, UNK, INTRAVENOUS
     Route: 042
     Dates: start: 20070323, end: 20070409
  4. DEXAMETHASONE TAB [Concomitant]
  5. RED BLOOD CELLS [Concomitant]
  6. PLATELETS [Concomitant]
  7. GANCICLOVIR [Concomitant]
  8. LASIX [Concomitant]
  9. SOLDACTONE (POTASSIUM CANRENOATE) [Concomitant]
  10. REMINARON (GABEXATE MESILATE) [Concomitant]
  11. RIBAVIRIN [Concomitant]

REACTIONS (15)
  - ANAEMIA [None]
  - ASPARTATE AMINOTRANSFERASE INCREASED [None]
  - BLOOD ALBUMIN DECREASED [None]
  - BLOOD CREATININE INCREASED [None]
  - BLOOD LACTATE DEHYDROGENASE INCREASED [None]
  - BLOOD POTASSIUM DECREASED [None]
  - BLOOD UREA INCREASED [None]
  - BLOOD URIC ACID INCREASED [None]
  - CARDIAC FAILURE [None]
  - CYSTITIS HAEMORRHAGIC [None]
  - DISEASE PROGRESSION [None]
  - PLATELET COUNT DECREASED [None]
  - PNEUMONIA [None]
  - PYREXIA [None]
  - WHITE BLOOD CELL COUNT DECREASED [None]
